FAERS Safety Report 8916302 (Version 3)
Quarter: 2013Q3

REPORT INFORMATION
  Report Type: Not Available
  Country: FR (occurrence: FR)
  Receive Date: 20121120
  Receipt Date: 20130703
  Transmission Date: 20140515
  Serious: Yes (Hospitalization)
  Sender: FDA-Public Use
  Company Number: FR-NAPPMUNDI-GBR-2012-0012109

PATIENT
  Age: 64 Year
  Sex: Male
  Weight: 76 kg

DRUGS (11)
  1. OXYCONTIN LP 10 MG, COMPRIME PELLICULE A LIBERATION PROLONGEE [Suspect]
     Indication: ANALGESIC INTERVENTION SUPPORTIVE THERAPY
     Dosage: 10 MG, DAILY
     Route: 048
     Dates: start: 201205, end: 20120821
  2. DEPOCYTE 50MG SUSPENSION FOR INJECTION [Suspect]
     Indication: DIFFUSE LARGE B-CELL LYMPHOMA REFRACTORY
     Dosage: 50 MG, UNK
     Route: 037
     Dates: start: 20120820, end: 20120820
  3. MESNA [Suspect]
     Indication: PROPHYLAXIS
     Dosage: 2000 MG, UNK
     Dates: start: 20120820, end: 20120821
  4. HOLOXAN [Suspect]
     Indication: DIFFUSE LARGE B-CELL LYMPHOMA REFRACTORY
     Dosage: 2000 MG, UNK
     Route: 042
  5. PRIMPERAN [Suspect]
     Indication: PRODUCT USED FOR UNKNOWN INDICATION
     Dosage: 80 MG, UNK
  6. ARACYTINE [Concomitant]
  7. ETOPOSIDE [Concomitant]
  8. ATARAX                             /00058401/ [Concomitant]
  9. EPREX [Concomitant]
  10. BACTRIM [Concomitant]
  11. ZELITREX [Concomitant]

REACTIONS (9)
  - Hallucination [Recovered/Resolved]
  - Disorientation [Recovered/Resolved]
  - Coordination abnormal [Recovered/Resolved]
  - Agitation [Recovered/Resolved]
  - Dizziness [Recovered/Resolved]
  - Headache [Recovered/Resolved]
  - Confusional state [Recovered/Resolved]
  - Pyrexia [Recovered/Resolved]
  - Encephalopathy [Recovered/Resolved]
